FAERS Safety Report 16529392 (Version 2)
Quarter: 2019Q4

REPORT INFORMATION
  Report Type: Spontaneous
  Country: None (occurrence: US)
  Receive Date: 20190704
  Receipt Date: 20191002
  Transmission Date: 20200122
  Serious: No
  Sender: FDA-Public Use
  Company Number: US-GW PHARMA-201905USGW1323

PATIENT

DRUGS (2)
  1. ZONEGRAN [Concomitant]
     Active Substance: ZONISAMIDE
     Indication: PRODUCT USED FOR UNKNOWN INDICATION
     Dosage: 50 MILLIGRAM, QD
     Route: 065
  2. EPIDIOLEX [Suspect]
     Active Substance: CANNABIDIOL
     Indication: EPILEPSY
     Dosage: 35 MILLIGRAM, BID
     Route: 048
     Dates: start: 20190424

REACTIONS (2)
  - Seizure [Unknown]
  - Sedation [Unknown]

NARRATIVE: CASE EVENT DATE: 201904
